FAERS Safety Report 10416034 (Version 1)
Quarter: 2014Q2

REPORT INFORMATION
  Report Type: Spontaneous
  Country: US (occurrence: None)
  Receive Date: 20140604
  Receipt Date: 20140604
  Transmission Date: 20141212
  Serious: Yes (Other)
  Sender: FDA-Public Use
  Company Number: 163-POMAL-14032775

PATIENT
  Age: 66 Year
  Sex: Male

DRUGS (11)
  1. POMALYST (POMALIDOMIDE) (4 MILLIGRAM, CAPSULES) [Suspect]
     Indication: PLASMA CELL MYELOMA
     Dosage: 4 MG, 21 IN 21 D
     Route: 048
     Dates: start: 20140305
  2. LOVENOX (HEPARIN-FRACTION, SODIUM SALT) [Concomitant]
  3. PREDNISONE [Concomitant]
  4. NEUPOGEN (FILGRASTIM) [Concomitant]
  5. ACYCLOVIR (ACICLOVIR) (ACICLOVIR) [Concomitant]
  6. DIPHEN ATROPINE (LOMOTIL) [Concomitant]
  7. ZOMETA (ZOLEDRONIC ACID) [Concomitant]
  8. CARFILZOMIB [Concomitant]
  9. CALCIUM +D (OS-CAL) [Concomitant]
  10. KLOR-CON (POTASSIUM CHLORIDE) UNKNOWN [Concomitant]
  11. LASIX (FUROSEMIDE) [Concomitant]

REACTIONS (2)
  - Gait disturbance [None]
  - Fatigue [None]
